FAERS Safety Report 12645431 (Version 2)
Quarter: 2016Q3

REPORT INFORMATION
  Report Type: Report from Study
  Country: JP (occurrence: JP)
  Receive Date: 20160811
  Receipt Date: 20160923
  Transmission Date: 20161109
  Serious: Yes (Other)
  Sender: FDA-Public Use
  Company Number: JP-INCYTE CORPORATION-2016IN004862

PATIENT
  Age: 65 Year
  Sex: Female
  Weight: 43 kg

DRUGS (7)
  1. HYDREA [Concomitant]
     Active Substance: HYDROXYUREA
     Indication: PRIMARY MYELOFIBROSIS
     Dosage: 1000 MG, UNK
     Route: 048
  2. RED BLOOD CELLS [Concomitant]
     Active Substance: HUMAN RED BLOOD CELL
     Dosage: 2 IU, UNK
     Route: 041
  3. JAKAFI [Suspect]
     Active Substance: RUXOLITINIB
     Indication: PRIMARY MYELOFIBROSIS
     Dosage: 10 MG, BID
     Route: 048
     Dates: start: 20160108, end: 20160208
  4. EXJADE [Suspect]
     Active Substance: DEFERASIROX
     Indication: PRODUCT USED FOR UNKNOWN INDICATION
     Dosage: 250 MG, UNK
     Route: 048
     Dates: start: 20160222
  5. JAKAFI [Suspect]
     Active Substance: RUXOLITINIB
     Dosage: 15 MG, BID
     Route: 048
     Dates: start: 20160209, end: 20160422
  6. RED BLOOD CELLS [Concomitant]
     Active Substance: HUMAN RED BLOOD CELL
     Indication: PRIMARY MYELOFIBROSIS
     Dosage: 2 IU, UNK
     Route: 041
  7. JAKAFI [Suspect]
     Active Substance: RUXOLITINIB
     Dosage: 10 MG, BID
     Route: 048
     Dates: start: 20160423

REACTIONS (1)
  - Hepatic function abnormal [Recovered/Resolved]

NARRATIVE: CASE EVENT DATE: 20160401
